FAERS Safety Report 9065276 (Version 7)
Quarter: 2014Q2

REPORT INFORMATION
  Report Type: Report from Study
  Country: IT (occurrence: IT)
  Receive Date: 20130214
  Receipt Date: 20140519
  Transmission Date: 20141212
  Serious: Yes (Death, Hospitalization)
  Sender: FDA-Public Use
  Company Number: IT-TEVA-386306USA

PATIENT
  Age: 75 Year
  Sex: Female
  Weight: 45 kg

DRUGS (16)
  1. BENDAMUSTINE [Suspect]
     Indication: PRODUCT USED FOR UNKNOWN INDICATION
     Dates: start: 20121226
  2. RITUXIMAB [Suspect]
     Indication: NON-HODGKIN^S LYMPHOMA
     Route: 042
     Dates: start: 20120713
  3. RITUXIMAB [Suspect]
     Route: 058
     Dates: start: 20120713
  4. RITUXIMAB [Suspect]
     Route: 058
     Dates: start: 20120830
  5. RITUXIMAB [Suspect]
     Route: 058
     Dates: start: 20120927
  6. RITUXIMAB [Suspect]
     Route: 058
     Dates: start: 20121025
  7. RITUXIMAB [Suspect]
     Route: 058
     Dates: start: 20121127
  8. RITUXIMAB [Suspect]
     Route: 058
     Dates: start: 20121227
  9. CARVEDILOL [Concomitant]
     Indication: CARDIAC VALVE DISEASE
     Dates: start: 2009
  10. DIGOXIN [Concomitant]
     Indication: CARDIAC VALVE DISEASE
     Dates: start: 2009
  11. CARDIOASPIRIN [Concomitant]
     Indication: CARDIAC VALVE DISEASE
     Dates: start: 2009
  12. WARFARIN SODIUM [Concomitant]
     Indication: CARDIAC VALVE DISEASE
     Dates: start: 2009
  13. OMEPRAZOLE [Concomitant]
     Indication: PROPHYLAXIS
     Dates: start: 2009
  14. FUROSEMIDE [Concomitant]
     Indication: CARDIAC VALVE DISEASE
     Dates: start: 2009
  15. CIPROXIN [Concomitant]
     Dates: start: 20121202, end: 20121206
  16. KCL-RETARD [Concomitant]
     Indication: FATIGUE
     Dates: start: 20121203, end: 20121206

REACTIONS (2)
  - Myocarditis infectious [Fatal]
  - Febrile neutropenia [Unknown]
